FAERS Safety Report 5425825-5 (Version None)
Quarter: 2007Q3

REPORT INFORMATION
  Report Type: 
  Country: None (occurrence: None)
  Receive Date: 20070827
  Receipt Date: 20070816
  Transmission Date: 20080115
  Serious: Yes (Other)
  Sender: FDA-Public Use
  Company Number: PHBS2007SE13689

PATIENT
  Age: 25 Year
  Sex: Female

DRUGS (2)
  1. RITALIN [Suspect]
     Dosage: 1 G, ONCE/SINGLE
  2. RITALIN [Suspect]

REACTIONS (8)
  - BLOOD PRESSURE SYSTOLIC DECREASED [None]
  - BODY TEMPERATURE INCREASED [None]
  - DRUG TOXICITY [None]
  - FEELING COLD [None]
  - HYPERHIDROSIS [None]
  - MYDRIASIS [None]
  - SALIVARY HYPERSECRETION [None]
  - SLUGGISHNESS [None]
